FAERS Safety Report 6931660-9 (Version None)
Quarter: 2010Q3

REPORT INFORMATION
  Report Type: 
  Country: None (occurrence: None)
  Receive Date: 20100819
  Receipt Date: 20100810
  Transmission Date: 20110219
  Serious: Yes (Other)
  Sender: FDA-Public Use
  Company Number: SE-NOVOPROD-309592

PATIENT
  Age: 42 Year
  Sex: Male

DRUGS (5)
  1. VICTOZA [Suspect]
     Indication: DIABETES MELLITUS
     Route: 058
  2. LANTUS [Concomitant]
     Indication: DIABETES MELLITUS
     Dosage: UNK
     Dates: end: 20100520
  3. LANTUS [Concomitant]
     Dosage: 42 U, UNK
  4. LANTUS [Concomitant]
     Dosage: 76 U, UNK
  5. APIDRA [Concomitant]
     Indication: DIABETES MELLITUS

REACTIONS (1)
  - DIABETIC KETOACIDOSIS [None]
